FAERS Safety Report 12243652 (Version 1)
Quarter: 2016Q2

REPORT INFORMATION
  Report Type: Spontaneous
  Country: JP (occurrence: JP)
  Receive Date: 20160406
  Receipt Date: 20160406
  Transmission Date: 20160815
  Serious: Yes (Hospitalization)
  Sender: FDA-Public Use
  Company Number: JP-ABBVIE-16P-087-1592309-00

PATIENT
  Age: 74 Year
  Sex: Male

DRUGS (9)
  1. ESLAX [Concomitant]
     Active Substance: ROCURONIUM BROMIDE
     Indication: INDUCTION OF ANAESTHESIA
     Route: 042
     Dates: start: 20150821, end: 20150821
  2. CEFAZOLIN SODIUM. [Concomitant]
     Active Substance: CEFAZOLIN SODIUM
     Indication: INFECTION PROPHYLAXIS
     Route: 065
     Dates: start: 20150821, end: 20150821
  3. BRIDION [Concomitant]
     Active Substance: SUGAMMADEX
     Indication: MUSCLE RELAXANT THERAPY
     Route: 042
     Dates: start: 20150821, end: 20150821
  4. SUPRANE [Concomitant]
     Active Substance: DESFLURANE
     Indication: MAINTENANCE OF ANAESTHESIA
     Route: 065
     Dates: start: 20150821, end: 20150821
  5. PROPOFOL. [Concomitant]
     Active Substance: PROPOFOL
     Indication: INDUCTION OF ANAESTHESIA
  6. POPSCAINE [Suspect]
     Active Substance: LEVOBUPIVACAINE HYDROCHLORIDE
     Indication: NERVE BLOCK
     Dosage: 250MG/100 ML; PERINEURAL
     Route: 050
     Dates: start: 20150821, end: 20150821
  7. PROPOFOL. [Concomitant]
     Active Substance: PROPOFOL
     Indication: SEDATION
     Route: 065
     Dates: start: 20150821
  8. DEXMEDETOMIDINE HYDROCHLORIDE. [Concomitant]
     Active Substance: DEXMEDETOMIDINE HYDROCHLORIDE
     Indication: SEDATION
     Route: 065
     Dates: start: 20150821, end: 20150823
  9. ULTIVA [Concomitant]
     Active Substance: REMIFENTANIL HYDROCHLORIDE
     Indication: INDUCTION OF ANAESTHESIA
     Route: 042
     Dates: start: 20150821, end: 20150821

REACTIONS (2)
  - Phrenic nerve paralysis [Recovered/Resolved]
  - Reexpansion pulmonary oedema [Recovered/Resolved]

NARRATIVE: CASE EVENT DATE: 20150821
